FAERS Safety Report 8110855 (Version 3)
Quarter: 2012Q4

REPORT INFORMATION
  Report Type: 
  Country: JP (occurrence: JP)
  Receive Date: 20110829
  Receipt Date: 20121015
  Transmission Date: 20130627
  Serious: Yes (Other)
  Sender: FDA-Public Use
  Company Number: JP-SANOFI-AVENTIS-2011SA053266

PATIENT
  Age: 72 Year
  Sex: Male
  Weight: 50.8 kg

DRUGS (6)
  1. DOCETAXEL [Suspect]
     Indication: ADENOCARCINOMA LUNG
     Dosage: taken on one day every week
     Route: 041
     Dates: start: 20101111, end: 20101216
  2. CISPLATIN [Suspect]
     Indication: ADENOCARCINOMA LUNG
     Route: 041
     Dates: start: 20101111, end: 20101216
  3. THERAPEUTIC RADIOPHARMACEUTICALS [Suspect]
     Indication: ADENOCARCINOMA LUNG
     Dosage: 46 Gray dose of radiotherapy was administered.
     Route: 065
     Dates: start: 20101111, end: 20101216
  4. MANNITOL [Concomitant]
     Indication: PREMEDICATION
     Route: 041
     Dates: start: 20101111, end: 20101216
  5. DEXAMETHASONE SODIUM PHOSPHATE [Concomitant]
     Indication: PREMEDICATION
     Route: 041
     Dates: start: 20101111, end: 20101216
  6. GRANISETRON [Concomitant]
     Indication: PREMEDICATION
     Route: 041
     Dates: start: 20101111, end: 20101216

REACTIONS (9)
  - Stress cardiomyopathy [Recovering/Resolving]
  - Dizziness [Recovered/Resolved]
  - Malaise [Recovered/Resolved]
  - Fatigue [Recovering/Resolving]
  - Hypotension [Recovering/Resolving]
  - Electrocardiogram T wave inversion [Recovering/Resolving]
  - Ventricular hypokinesia [Recovering/Resolving]
  - Ejection fraction decreased [Recovering/Resolving]
  - Pleural effusion [Recovered/Resolved]
